FAERS Safety Report 9408699 (Version 3)
Quarter: 2013Q3

REPORT INFORMATION
  Report Type: Report from Study
  Country: US (occurrence: US)
  Receive Date: 20130712
  Receipt Date: 20130918
  Transmission Date: 20140515
  Serious: Yes (Hospitalization, Other)
  Sender: FDA-Public Use
  Company Number: US-PFIZER INC-2013202484

PATIENT
  Age: 46 Year
  Sex: Female

DRUGS (33)
  1. EFFEXOR [Suspect]
     Dosage: UNK
     Dates: end: 201305
  2. EFFEXOR XR [Suspect]
     Indication: DEPRESSION
     Dosage: 75 MG DAILY
     Route: 048
     Dates: start: 2005, end: 201304
  3. EFFEXOR XR [Suspect]
     Dosage: 150 MG, 1X/DAY (TAKE 150 MG BY MOUTH DAILY)
     Route: 048
  4. COPAXONE [Suspect]
     Indication: MULTIPLE SCLEROSIS
     Dosage: 20 MG, 1X/DAY (INJECT 20 MG INTO SKIN DAILY 9PM)
     Route: 058
     Dates: start: 20050906, end: 20130418
  5. COPAXONE [Suspect]
     Dosage: UNK
     Dates: start: 20130524, end: 20130527
  6. DOMPERIDONE [Concomitant]
     Indication: IMPAIRED GASTRIC EMPTYING
     Dosage: 20 MG, 3X/DAY (3 TIMES DAILY (BEFORE MEALS)
     Route: 048
     Dates: start: 201210
  7. VITAMIN B12 [Concomitant]
     Indication: SUPPLEMENTATION THERAPY
     Dosage: 1000 UG, 1X/DAY (DAILY)
     Route: 048
  8. FOLVITE [Concomitant]
     Indication: SUPPLEMENTATION THERAPY
     Dosage: 1 MG, 1X/DAY (TAKE ONE TABLET BY MOUTH DAILY)
     Route: 048
     Dates: start: 20111205
  9. DECADRON [Concomitant]
     Dosage: UNK, WEEKLY
  10. ZOFRAN ODT [Concomitant]
     Indication: NAUSEA
     Dosage: 4 MG, 3X/DAY (TAKE 4 MG BY MOUTH EVERY 8 HOURS AS NEEDED)
     Route: 048
  11. ALBUTEROL SULFATE HFA IN [Concomitant]
     Dosage: UNK, AS NEEDED (INHALE INTO THE LUNGS AS NEEDED)
  12. PREVACID [Concomitant]
     Dosage: 30 MG, 1X/DAY (TAKE 30MG BY MOUTH DAILY)
     Route: 048
  13. SYMBICORT [Concomitant]
     Dosage: 2 DF, 2X/DAY (INHALE 2 PUFFS INTO THE LUNGS TWO TIMES DAILY)
  14. PROVENTIL [Concomitant]
     Dosage: 2.5 MG, 4X/DAY (2.5 MG BY NASAL ROUTE EVERY 6 HOURS AS NEEDED)
     Route: 045
  15. ACIDOPHILUS [Concomitant]
     Dosage: 100 MG, 1X/DAY (TAKE 100 MG BY MOUTH DAILY BEFORE SUPPER)
     Route: 048
  16. OMEGA 3-6-9 FATTY ACIDS [Concomitant]
     Dosage: 3 DF, 1X/DAY (TAKE 3 CAPSULES DAILY)
     Route: 048
  17. TOPAMAX [Concomitant]
     Dosage: 25 MG, 2X/DAY
     Route: 048
  18. TOPAMAX [Concomitant]
     Dosage: 50 MG, 2X/DAY (BID)
     Route: 048
  19. POTASSIUM CHLORIDE [Concomitant]
     Dosage: 40 MEQ,ONCE
     Route: 042
  20. POTASSIUM CHLORIDE [Concomitant]
     Dosage: 20 MEQ, ONCE
     Route: 042
  21. AMLODIPINE [Concomitant]
     Dosage: 5 MG, 1X/DAY
     Route: 048
  22. FLORANEX [Concomitant]
     Dosage: 1 DF, 1X/DAY (DAILY)
     Route: 048
  23. FISH OIL OMEGA 3 FATTY ACIDS [Concomitant]
     Dosage: 1 G, 3X/DAY (TID AC)
     Route: 048
  24. SODIUM CHLORIDE [Concomitant]
     Dosage: 10 ML, 3X/DAY (Q8H SCH)
     Route: 042
  25. HEPARIN (PORCINE) LOCK FLUSH [Concomitant]
     Dosage: 5 ML, 3X/DAY (Q8H SCH)
     Route: 042
  26. PANTOPRAZOLE [Concomitant]
     Dosage: 40 MG, 2X/DAY (BID AC)
     Route: 048
  27. PANTOPRAZOLE [Concomitant]
     Dosage: 40 MG, 1X/DAY (QAM AC)
     Route: 048
  28. VALIUM [Concomitant]
     Dosage: 5 MG, 3X/DAY
     Route: 048
  29. VALIUM [Concomitant]
     Dosage: 5 MG, 1X/DAY (DAILY)
     Route: 048
  30. VALIUM [Concomitant]
     Dosage: 10 MG, 1X/DAY (NIGHTLY)
     Route: 048
  31. ENOXAPARIN [Concomitant]
     Dosage: 40 MG, 1X/DAY (DAILY)
     Route: 058
  32. PHENERGAN [Concomitant]
     Dosage: 25 MG, 2X/DAY (TAKE 1 TABLET BY MOUTH EVERY 6 HOURS AS NEEDED)
     Route: 048
  33. LINZESS [Concomitant]
     Dosage: 145 UG, 1X/DAY (TAKE BY MOUTH DAILY)
     Route: 048

REACTIONS (32)
  - Impaired gastric emptying [Recovering/Resolving]
  - Hypertension [Unknown]
  - Depression [Unknown]
  - Anxiety [Unknown]
  - Multiple sclerosis relapse [Unknown]
  - Migraine without aura [Unknown]
  - Hypokalaemia [Unknown]
  - Gait disturbance [Unknown]
  - Dyspnoea [Unknown]
  - Night sweats [Unknown]
  - Neck pain [Unknown]
  - Abnormal dreams [Unknown]
  - Hyperhidrosis [Unknown]
  - Muscle spasms [Unknown]
  - Sensory loss [Unknown]
  - Hypoaesthesia [Unknown]
  - Weight increased [Unknown]
  - Asthenia [Unknown]
  - Dizziness postural [Unknown]
  - Tremor [Unknown]
  - Feeling abnormal [Unknown]
  - Malaise [Unknown]
  - Fatigue [Unknown]
  - Chest pain [Unknown]
  - Palpitations [Unknown]
  - Abdominal pain [Unknown]
  - Constipation [Unknown]
  - Paraesthesia [Unknown]
  - Weight decreased [Unknown]
  - Oesophagitis [Unknown]
  - Drug withdrawal syndrome [Unknown]
  - Rash [Unknown]
